FAERS Safety Report 4734306-3 (Version None)
Quarter: 2005Q3

REPORT INFORMATION
  Report Type: 
  Country: None (occurrence: None)
  Receive Date: 20050802
  Receipt Date: 20050722
  Transmission Date: 20060218
  Serious: Yes (Hospitalization)
  Sender: FDA-Public Use
  Company Number: KII-2005-0017729

PATIENT
  Age: 2 Year
  Sex: Male

DRUGS (1)
  1. MORPHINE SULFATE [Suspect]
     Dosage: SEE TEXT, ORAL
     Route: 048
     Dates: start: 20050627

REACTIONS (3)
  - ACCIDENTAL EXPOSURE [None]
  - OVERDOSE [None]
  - TONGUE DISCOLOURATION [None]
